FAERS Safety Report 6372229-7 (Version None)
Quarter: 2009Q3

REPORT INFORMATION
  Report Type: 
  Country: None (occurrence: None)
  Receive Date: 20090924
  Receipt Date: 20090916
  Transmission Date: 20100115
  Serious: Yes (Hospitalization)
  Sender: FDA-Public Use
  Company Number: ES-BIOGENIDEC-2009BI029771

PATIENT
  Age: 37 Year
  Sex: Female

DRUGS (4)
  1. TYSABRI [Suspect]
     Indication: MULTIPLE SCLEROSIS
     Route: 042
     Dates: start: 20081001, end: 20090218
  2. ESCITALOPRAM [Concomitant]
  3. ALPRAZOLAM [Concomitant]
  4. LORAZEPAM [Concomitant]

REACTIONS (1)
  - TERATOMA [None]
